FAERS Safety Report 7450413-9 (Version None)
Quarter: 2011Q2

REPORT INFORMATION
  Report Type: 
  Country: None (occurrence: None)
  Receive Date: 20110502
  Receipt Date: 20110421
  Transmission Date: 20111010
  Serious: Yes (Life-Threatening)
  Sender: FDA-Public Use
  Company Number: JP-CTI_01349_2011

PATIENT
  Age: 23 Month
  Sex: Female

DRUGS (5)
  1. L-CARBOCISTEINE [Concomitant]
     Route: 048
  2. CETIRIZINE HYDROCHLORIDE [Concomitant]
     Dosage: DF
     Route: 048
  3. TIPEPIDINE HIBENZATE [Concomitant]
     Dosage: DF
     Route: 048
  4. TULOBUTEROL [Concomitant]
     Dosage: DF
     Route: 062
  5. MEIACT MS FINE GRANULES (CEFDITOREN PIVOXIL) [Suspect]
     Indication: OTITIS MEDIA
     Dosage: DF
     Route: 048

REACTIONS (4)
  - COMA [None]
  - HYPOGLYCAEMIA [None]
  - CONVULSION [None]
  - CARNITINE DECREASED [None]
